FAERS Safety Report 19444719 (Version 1)
Quarter: 2021Q2

REPORT INFORMATION
  Report Type: Spontaneous
  Country: HR (occurrence: HR)
  Receive Date: 20210621
  Receipt Date: 20210621
  Transmission Date: 20210717
  Serious: Yes (Other)
  Sender: FDA-Public Use
  Company Number: HR-SA-2021SA202035

PATIENT
  Age: 46 Year
  Sex: Female
  Weight: 65 kg

DRUGS (1)
  1. AUBAGIO [Suspect]
     Active Substance: TERIFLUNOMIDE
     Indication: MULTIPLE SCLEROSIS
     Dosage: 14 MG, QD
     Route: 048
     Dates: start: 20200320, end: 20201001

REACTIONS (2)
  - Diarrhoea haemorrhagic [Recovered/Resolved]
  - Headache [Recovered/Resolved]

NARRATIVE: CASE EVENT DATE: 20200401
